FAERS Safety Report 13738118 (Version 2)
Quarter: 2017Q3

REPORT INFORMATION
  Report Type: Spontaneous
  Country: SE (occurrence: SE)
  Receive Date: 20170710
  Receipt Date: 20170717
  Transmission Date: 20171127
  Serious: Yes (Death, Hospitalization, Other)
  Sender: FDA-Public Use
  Company Number: SE-ELI_LILLY_AND_COMPANY-SE201707002934

PATIENT
  Age: 67 Year
  Sex: Female

DRUGS (3)
  1. CARBOPLATIN. [Concomitant]
     Active Substance: CARBOPLATIN
     Indication: FALLOPIAN TUBE CANCER
  2. AVASTIN [Concomitant]
     Active Substance: BEVACIZUMAB
     Indication: FALLOPIAN TUBE CANCER
  3. GEMCITABINE HYDROCHLORIDE. [Suspect]
     Active Substance: GEMCITABINE HYDROCHLORIDE
     Indication: FALLOPIAN TUBE CANCER
     Dosage: 1280 MG, CYCLICAL
     Route: 065

REACTIONS (4)
  - Fatigue [Unknown]
  - Thrombotic microangiopathy [Fatal]
  - Off label use [Unknown]
  - Pancytopenia [Unknown]

NARRATIVE: CASE EVENT DATE: 20170429
